FAERS Safety Report 5874793-0 (Version None)
Quarter: 2008Q3

REPORT INFORMATION
  Report Type: 
  Country: None (occurrence: None)
  Receive Date: 20080908
  Receipt Date: 20080908
  Transmission Date: 20090109
  Serious: Yes (Death)
  Sender: FDA-Public Use
  Company Number: None

PATIENT
  Sex: Male
  Weight: 86.1834 kg

DRUGS (2)
  1. FENTANYL [Suspect]
     Dates: start: 20060130, end: 20060203
  2. FENTANYL [Suspect]

REACTIONS (2)
  - SELF-MEDICATION [None]
  - THERAPEUTIC AGENT TOXICITY [None]
